FAERS Safety Report 7932825-X (Version None)
Quarter: 2011Q4

REPORT INFORMATION
  Report Type: 
  Country: None (occurrence: None)
  Receive Date: 20111122
  Receipt Date: 20111115
  Transmission Date: 20120403
  Serious: Yes (Other)
  Sender: FDA-Public Use
  Company Number: NL-PFIZER INC-2011245581

PATIENT
  Age: 67 Year
  Sex: Female

DRUGS (4)
  1. TOVIAZ [Suspect]
     Indication: BLADDER DISORDER
     Dosage: 4 MG, 1X/DAY
     Dates: start: 20110726, end: 20110805
  2. ACETYLSALICYLIC ACID [Concomitant]
     Dosage: 80 MG, 1X/DAY
  3. THYRAX [Concomitant]
     Dosage: 75 UG, 3X/DAY
  4. MICARDIS [Concomitant]
     Dosage: 10 MG, UNK

REACTIONS (3)
  - BACTERIAL INFECTION [None]
  - RASH [None]
  - DRY SKIN [None]
